FAERS Safety Report 7562134-2 (Version None)
Quarter: 2011Q2

REPORT INFORMATION
  Report Type: 
  Country: None (occurrence: None)
  Receive Date: 20110622
  Receipt Date: 20110614
  Transmission Date: 20111010
  Serious: Yes (Hospitalization)
  Sender: FDA-Public Use
  Company Number: IL-BRISTOL-MYERS SQUIBB COMPANY-15844202

PATIENT
  Age: 70 Year
  Sex: Male

DRUGS (3)
  1. ERBITUX [Suspect]
     Indication: COLORECTAL CANCER
     Dosage: NO OF INFUSIONS:20
     Dates: start: 20100101, end: 20110424
  2. IRINOTECAN HYDROCHLORIDE [Concomitant]
     Indication: COLORECTAL CANCER
     Dosage: LAST DOSE ON 24APR2011
  3. FLUOROURACIL [Suspect]
     Indication: COLORECTAL CANCER
     Dosage: BOLUS 400MG/M2 CONTINUOUS FOR 46 HOURS:2400 MG/M2.LAST DOSE ON 24APR11
     Route: 042

REACTIONS (4)
  - MUSCULAR WEAKNESS [None]
  - MONOPLEGIA [None]
  - TREMOR [None]
  - MONOPARESIS [None]
